FAERS Safety Report 14871279 (Version 1)
Quarter: 2018Q2

REPORT INFORMATION
  Report Type: Other
  Country: US (occurrence: US)
  Receive Date: 20180509
  Receipt Date: 20180509
  Transmission Date: 20180711
  Serious: No
  Sender: FDA-Public Use
  Company Number: US-ALKERMES INC.-ALK-2017-004261

PATIENT
  Age: 24 Year
  Sex: Male
  Weight: 74.25 kg

DRUGS (1)
  1. VIVITROL [Suspect]
     Active Substance: NALTREXONE
     Indication: DRUG ABUSE
     Dosage: 380 MG, QMO
     Route: 030
     Dates: start: 20170628

REACTIONS (8)
  - Mood swings [Unknown]
  - Decreased appetite [Unknown]
  - Loss of libido [Unknown]
  - Depressed mood [Unknown]
  - Feeling abnormal [Unknown]
  - Insomnia [Unknown]
  - Disturbance in attention [Unknown]
  - Anhedonia [Unknown]

NARRATIVE: CASE EVENT DATE: 20170628
